FAERS Safety Report 9540356 (Version 5)
Quarter: 2014Q1

REPORT INFORMATION
  Report Type: Report from Study
  Country: RU (occurrence: RU)
  Receive Date: 20130920
  Receipt Date: 20140114
  Transmission Date: 20141002
  Serious: Yes (Hospitalization, Other)
  Sender: FDA-Public Use
  Company Number: RU-TEVA-433641USA

PATIENT
  Age: 62 Year
  Sex: Male
  Weight: 91.5 kg

DRUGS (21)
  1. BENDAMUSTINE [Suspect]
     Indication: CHRONIC LYMPHOCYTIC LEUKAEMIA
     Route: 042
     Dates: start: 20130521
  2. BENDAMUSTINE [Suspect]
     Indication: NODAL MARGINAL ZONE B-CELL LYMPHOMA
     Route: 042
     Dates: start: 20130814
  3. RITUXIMAB [Suspect]
     Indication: CHRONIC LYMPHOCYTIC LEUKAEMIA
     Route: 042
     Dates: start: 20130520
  4. RITUXIMAB [Suspect]
     Indication: NODAL MARGINAL ZONE B-CELL LYMPHOMA
     Route: 042
     Dates: start: 20130813
  5. IBRUTINIB/PLACEBO [Suspect]
     Indication: CHRONIC LYMPHOCYTIC LEUKAEMIA
     Dosage: 420 MILLIGRAM DAILY;
     Route: 048
     Dates: start: 20130521
  6. IBRUTINIB/PLACEBO [Suspect]
     Indication: NODAL MARGINAL ZONE B-CELL LYMPHOMA
     Dosage: 420 MILLIGRAM DAILY;
     Route: 048
     Dates: start: 20130909
  7. PREDNISONE [Concomitant]
     Indication: PREMEDICATION
     Route: 041
     Dates: start: 20130520
  8. PREDNISONE [Concomitant]
     Route: 041
     Dates: start: 20130618
  9. PREDNISONE [Concomitant]
     Route: 041
     Dates: start: 20130716
  10. PREDNISONE [Concomitant]
     Route: 041
     Dates: start: 20130813
  11. KETOROLAC [Concomitant]
     Indication: PREMEDICATION
     Route: 041
     Dates: start: 20130520
  12. KETOROLAC [Concomitant]
     Route: 041
     Dates: start: 20130618
  13. KETOROLAC [Concomitant]
     Route: 041
     Dates: start: 20130716
  14. KETOROLAC [Concomitant]
     Route: 041
     Dates: start: 20130813
  15. DIPHENHYDRAMINE [Concomitant]
     Indication: PREMEDICATION
     Route: 041
     Dates: start: 20130520
  16. DIPHENHYDRAMINE [Concomitant]
     Route: 041
     Dates: start: 20130618
  17. DIPHENHYDRAMINE [Concomitant]
     Route: 041
     Dates: start: 20130716
  18. DIPHENHYDRAMINE [Concomitant]
     Route: 041
     Dates: start: 20130813
  19. FIVE PERCENT GLUCOSE IN SALINE [Concomitant]
     Indication: TUMOUR LYSIS SYNDROME
     Route: 041
     Dates: start: 20130617
  20. INDAPAMIDE [Concomitant]
     Indication: HYPERTENSION
     Dosage: 2.5 MILLIGRAM DAILY;
     Route: 048
  21. BISOPROLOL [Concomitant]
     Indication: HYPERTENSION
     Dosage: 5 MILLIGRAM DAILY;
     Route: 048

REACTIONS (1)
  - Proctitis infectious [Recovered/Resolved]
